FAERS Safety Report 6011491-7 (Version None)
Quarter: 2008Q4

REPORT INFORMATION
  Report Type: 
  Country: None (occurrence: None)
  Receive Date: 20081217
  Receipt Date: 20081217
  Transmission Date: 20090506
  Serious: Yes (Death)
  Sender: FDA-Public Use
  Company Number: None

PATIENT
  Age: 73 Year
  Sex: Male
  Weight: 73.95 kg

DRUGS (2)
  1. LORAZEPAM [Suspect]
     Indication: ANXIETY
     Dosage: 0.5 MG ONCE IV
     Route: 042
     Dates: start: 20081210, end: 20081210
  2. MORPHINE [Suspect]
     Indication: PAIN
     Dosage: 3 MG ONCE IV
     Route: 042
     Dates: start: 20081207, end: 20081210

REACTIONS (4)
  - DISORIENTATION [None]
  - HEART RATE DECREASED [None]
  - RESPIRATORY RATE DECREASED [None]
  - TREATMENT NONCOMPLIANCE [None]
